FAERS Safety Report 5345555-8 (Version None)
Quarter: 2007Q2

REPORT INFORMATION
  Report Type: 
  Country: None (occurrence: None)
  Receive Date: 20070601
  Receipt Date: 20070601
  Transmission Date: 20071010
  Serious: Yes (Life-Threatening, Hospitalization, Other)
  Sender: FDA-Public Use
  Company Number: None

PATIENT
  Sex: Male
  Weight: 90.7194 kg

DRUGS (2)
  1. OXYCONTIN [Suspect]
     Indication: ACCIDENT
     Dosage: 80 MG. QID PO
     Route: 048
     Dates: start: 20020310, end: 20040515
  2. OXYCONTIN [Suspect]
     Indication: TENSION HEADACHE
     Dosage: 80 MG. QID PO
     Route: 048
     Dates: start: 20020310, end: 20040515

REACTIONS (5)
  - BREAKTHROUGH PAIN [None]
  - DRUG WITHDRAWAL SYNDROME [None]
  - MALAISE [None]
  - NERVOUS SYSTEM DISORDER [None]
  - SUICIDE ATTEMPT [None]
